FAERS Safety Report 23966733 (Version 3)
Quarter: 2024Q3

REPORT INFORMATION
  Report Type: Spontaneous
  Country: US (occurrence: US)
  Receive Date: 20240612
  Receipt Date: 20240714
  Transmission Date: 20241016
  Serious: Yes (Other)
  Sender: JOHNSON AND JOHNSON
  Company Number: US-JNJFOC-20240621434

PATIENT
  Age: 21 Year
  Sex: Male
  Weight: 67.2 kg

DRUGS (3)
  1. RILPIVIRINE [Suspect]
     Active Substance: RILPIVIRINE
     Indication: HIV infection
     Route: 030
     Dates: start: 20240416
  2. CABOTEGRAVIR [Suspect]
     Active Substance: CABOTEGRAVIR
     Indication: HIV infection
     Route: 030
     Dates: start: 20240416
  3. ADDERALL [Concomitant]
     Active Substance: AMPHETAMINE ASPARTATE\AMPHETAMINE SULFATE\DEXTROAMPHETAMINE SACCHARATE\DEXTROAMPHETAMINE SULFATE
     Indication: Attention deficit hyperactivity disorder
     Route: 048

REACTIONS (9)
  - Tunnel vision [Recovered/Resolved]
  - Adverse drug reaction [Recovered/Resolved]
  - Cough [Recovered/Resolved]
  - Swelling face [Recovered/Resolved]
  - Cough [Recovered/Resolved]
  - Anxiety [Recovered/Resolved]
  - Product physical consistency issue [Unknown]
  - Incorrect route of product administration [Unknown]
  - Tachycardia [Recovered/Resolved]

NARRATIVE: CASE EVENT DATE: 20240416
